FAERS Safety Report 8018205-X (Version None)
Quarter: 2011Q4

REPORT INFORMATION
  Report Type: 
  Country: None (occurrence: None)
  Receive Date: 20111228
  Receipt Date: 20111212
  Transmission Date: 20120403
  Serious: Yes (Other)
  Sender: FDA-Public Use
  Company Number: 1000026425

PATIENT
  Sex: Male

DRUGS (2)
  1. ESCITALOPRAM [Concomitant]
  2. CITALOPRAM HYDROBROMIDE [Suspect]
     Indication: DEPRESSION
     Dosage: ORAL
     Route: 048

REACTIONS (7)
  - DIARRHOEA [None]
  - PRODUCT SUBSTITUTION ISSUE [None]
  - NAUSEA [None]
  - HALLUCINATION [None]
  - DISTURBANCE IN ATTENTION [None]
  - HEADACHE [None]
  - MALAISE [None]
